FAERS Safety Report 15132957 (Version 4)
Quarter: 2019Q2

REPORT INFORMATION
  Report Type: Report from Study
  Country: BR (occurrence: BR)
  Receive Date: 20180712
  Receipt Date: 20190422
  Transmission Date: 20190711
  Serious: Yes (Hospitalization, Other)
  Sender: FDA-Public Use
  Company Number: BR-TEVA-2018-BR-922813

PATIENT
  Age: 20 Year
  Sex: Female

DRUGS (4)
  1. AD-TIL [Concomitant]
  2. MESTINON [Concomitant]
     Active Substance: PYRIDOSTIGMINE BROMIDE
  3. OMEPRAZOLE. [Concomitant]
     Active Substance: OMEPRAZOLE
  4. COPAXONE [Suspect]
     Active Substance: GLATIRAMER ACETATE
     Indication: RELAPSING-REMITTING MULTIPLE SCLEROSIS
     Dosage: 20 MILLIGRAM/MILLILITERS DAILY;
     Route: 058
     Dates: start: 20150513, end: 20180627

REACTIONS (11)
  - Paraesthesia [Recovered/Resolved]
  - Maternal exposure during pregnancy [Unknown]
  - Multiple sclerosis relapse [Recovered/Resolved]
  - Vision blurred [Recovered/Resolved]
  - Malaise [Recovered/Resolved]
  - Premature labour [Recovered/Resolved]
  - Throat tightness [Recovered/Resolved]
  - Syncope [Recovered/Resolved]
  - Hemiparesis [Recovered/Resolved]
  - Live birth [Unknown]
  - Burning sensation [Recovered/Resolved]

NARRATIVE: CASE EVENT DATE: 20171125
